FAERS Safety Report 9857541 (Version 1)
Quarter: 2014Q1

REPORT INFORMATION
  Report Type: Spontaneous
  Country: CA (occurrence: CA)
  Receive Date: 20140131
  Receipt Date: 20140131
  Transmission Date: 20141002
  Serious: Yes (Other)
  Sender: FDA-Public Use
  Company Number: CHPA2014CA001317

PATIENT
  Sex: Female

DRUGS (1)
  1. NEOCITRAN UNKNOWN [Suspect]
     Indication: NASOPHARYNGITIS
     Dosage: 1 UNK, PRN
     Route: 048

REACTIONS (2)
  - Nasopharyngitis [Recovered/Resolved]
  - Disease recurrence [Recovered/Resolved]
